FAERS Safety Report 4331526-7 (Version None)
Quarter: 2004Q2

REPORT INFORMATION
  Report Type: 
  Country: None (occurrence: None)
  Receive Date: 20040402
  Receipt Date: 20040319
  Transmission Date: 20050107
  Serious: Yes (Life-Threatening, Disabling)
  Sender: FDA-Public Use
  Company Number: US-MERCK-0403USA01895

PATIENT
  Age: 58 Year
  Sex: Male
  Weight: 102 kg

DRUGS (4)
  1. [THERAPY UNSPECIFIED] [Concomitant]
     Route: 065
  2. ATENOLOL [Concomitant]
     Route: 065
  3. MINTEZOL [Suspect]
     Indication: HELMINTHIC INFECTION
     Route: 048
     Dates: start: 20040301, end: 20040324
  4. COUMADIN [Concomitant]
     Route: 065

REACTIONS (6)
  - DECREASED APPETITE [None]
  - DRUG INEFFECTIVE [None]
  - FEELING ABNORMAL [None]
  - MEDICATION ERROR [None]
  - RASH [None]
  - VOMITING [None]
